FAERS Safety Report 5340131-5 (Version None)
Quarter: 2007Q2

REPORT INFORMATION
  Report Type: 
  Country: None (occurrence: None)
  Receive Date: 20070525
  Receipt Date: 20070525
  Transmission Date: 20071010
  Serious: Yes (Hospitalization)
  Sender: FDA-Public Use
  Company Number: None

PATIENT
  Age: 54 Year
  Sex: Male
  Weight: 84 kg

DRUGS (7)
  1. DETROL LA [Suspect]
     Indication: URINARY RETENTION
  2. KEPPRA [Suspect]
     Indication: CONVULSION
     Dosage: 1250 MG PO BID
  3. HALDOL [Concomitant]
  4. DILANTIN [Concomitant]
  5. PHENOBARB [Concomitant]
  6. ATIVAN [Concomitant]
  7. FLOMAX [Concomitant]

REACTIONS (1)
  - AGGRESSION [None]
